FAERS Safety Report 13786546 (Version 1)
Quarter: 2017Q3

REPORT INFORMATION
  Report Type: Spontaneous
  Country: US (occurrence: US)
  Receive Date: 20170725
  Receipt Date: 20170725
  Transmission Date: 20171127
  Serious: Yes (Disabling)
  Sender: FDA-Public Use
  Company Number: None

PATIENT
  Age: 28 Year
  Weight: 67 kg

DRUGS (1)
  1. NUVARING [Suspect]
     Active Substance: ETHINYL ESTRADIOL\ETONOGESTREL
     Indication: CONTRACEPTION
     Dates: start: 20170716, end: 20170724

REACTIONS (10)
  - Depression [None]
  - Disturbance in attention [None]
  - Mood altered [None]
  - Pain [None]
  - Crying [None]
  - Depressed level of consciousness [None]
  - Nausea [None]
  - Paranoia [None]
  - Aggression [None]
  - Discomfort [None]

NARRATIVE: CASE EVENT DATE: 20170716
